FAERS Safety Report 14022313 (Version 2)
Quarter: 2019Q3

REPORT INFORMATION
  Report Type: Report from Study
  Country: US (occurrence: US)
  Receive Date: 20170928
  Receipt Date: 20190731
  Transmission Date: 20191004
  Serious: Yes (Hospitalization, Other)
  Sender: FDA-Public Use
  Company Number: US-ARIAD PHARMACEUTICALS, INC-2017US007889

PATIENT
  Age: 48 Year
  Sex: Female

DRUGS (5)
  1. BLINATUMOMAB [Suspect]
     Active Substance: BLINATUMOMAB
     Indication: CHRONIC MYELOID LEUKAEMIA
     Dosage: UNK
     Route: 065
  2. PONATINIB [Suspect]
     Active Substance: PONATINIB
     Indication: CHRONIC MYELOID LEUKAEMIA
     Dosage: 30 MILLIGRAM, QD
     Route: 048
     Dates: start: 20151106
  3. PONATINIB [Suspect]
     Active Substance: PONATINIB
     Indication: HIV INFECTION
     Dosage: 30 MILLIGRAM, QD
     Route: 048
  4. BLINATUMOMAB [Suspect]
     Active Substance: BLINATUMOMAB
     Dosage: UNK
     Route: 065
     Dates: end: 20161202
  5. BLINATUMOMAB [Suspect]
     Active Substance: BLINATUMOMAB
     Dosage: UNK
     Route: 065
     Dates: start: 20170127, end: 20170223

REACTIONS (31)
  - Klebsiella bacteraemia [Unknown]
  - Bacteraemia [Unknown]
  - Febrile neutropenia [Unknown]
  - Diarrhoea [Unknown]
  - Pneumonia [Unknown]
  - Multiple drug therapy [Unknown]
  - Chronic myeloid leukaemia recurrent [Unknown]
  - Central venous catheterisation [Unknown]
  - Hypovolaemia [Unknown]
  - Pain [Unknown]
  - HIV infection [Unknown]
  - Pancytopenia [Unknown]
  - Transaminases increased [Unknown]
  - Allogenic bone marrow transplantation therapy [Unknown]
  - Hepatitis B [Unknown]
  - Abdominal pain [Unknown]
  - Hypertension [Unknown]
  - Influenza [Unknown]
  - Aphasia [Recovered/Resolved]
  - Tooth extraction [Unknown]
  - Pain in extremity [Unknown]
  - Central venous catheter removal [Unknown]
  - Urinary tract infection [Unknown]
  - Electrocardiogram QT prolonged [Unknown]
  - Hypophagia [Unknown]
  - Neutropenic colitis [Unknown]
  - Intervertebral disc protrusion [Unknown]
  - Major depression [Unknown]
  - Drug abuse [Unknown]
  - Renal disorder [Unknown]
  - Headache [Unknown]

NARRATIVE: CASE EVENT DATE: 20160229
